FAERS Safety Report 7892699-2 (Version None)
Quarter: 2011Q4

REPORT INFORMATION
  Report Type: 
  Country: None (occurrence: None)
  Receive Date: 20111102
  Receipt Date: 20111026
  Transmission Date: 20120403
  Serious: Yes (Hospitalization, Other)
  Sender: FDA-Public Use
  Company Number: 2009SP023472

PATIENT
  Age: 24 Year
  Sex: Female
  Weight: 127.4608 kg

DRUGS (2)
  1. NUVARING [Suspect]
     Indication: CONTRACEPTION
     Dosage: 1 DF
     Dates: start: 20061101, end: 20070915
  2. LORTAB [Suspect]
     Indication: PAIN

REACTIONS (22)
  - ECONOMIC PROBLEM [None]
  - GROIN PAIN [None]
  - RECTAL HAEMORRHAGE [None]
  - NAUSEA [None]
  - PYREXIA [None]
  - CONSTIPATION [None]
  - HYPOAESTHESIA [None]
  - WEIGHT DECREASED [None]
  - C-REACTIVE PROTEIN INCREASED [None]
  - HAEMORRHOIDS [None]
  - HYPERHIDROSIS [None]
  - CHILLS [None]
  - GASTROENTERITIS VIRAL [None]
  - PULMONARY EMBOLISM [None]
  - MARITAL PROBLEM [None]
  - BLOOD DISORDER [None]
  - EAR PAIN [None]
  - JOINT EFFUSION [None]
  - DIZZINESS [None]
  - DEPRESSION [None]
  - HEADACHE [None]
  - OVARIAN CYST [None]
